FAERS Safety Report 12815436 (Version 2)
Quarter: 2016Q4

REPORT INFORMATION
  Report Type: Spontaneous
  Country: US (occurrence: US)
  Receive Date: 20161005
  Receipt Date: 20161019
  Transmission Date: 20170207
  Serious: Yes (Other)
  Sender: FDA-Public Use
  Company Number: US-TEVA-697107USA

PATIENT
  Sex: Female
  Weight: 74.46 kg

DRUGS (14)
  1. SYNTHROID [Concomitant]
     Active Substance: LEVOTHYROXINE SODIUM
     Indication: AUTOIMMUNE THYROIDITIS
  2. LISINOPRIL. [Concomitant]
     Active Substance: LISINOPRIL
  3. MULTIVITAMIN [Concomitant]
     Active Substance: VITAMINS
  4. ADDERALL [Concomitant]
     Active Substance: AMPHETAMINE ASPARTATE\AMPHETAMINE SULFATE\DEXTROAMPHETAMINE SACCHARATE\DEXTROAMPHETAMINE SULFATE
     Dosage: AS NEEDED
  5. VITAMIN D [Concomitant]
     Active Substance: CHOLECALCIFEROL
  6. KLONOPIN [Concomitant]
     Active Substance: CLONAZEPAM
  7. CAFFEINE. [Concomitant]
     Active Substance: CAFFEINE
  8. IRON [Concomitant]
     Active Substance: IRON
  9. MAGNESIUM [Concomitant]
     Active Substance: MAGNESIUM
  10. NUVIGIL [Suspect]
     Active Substance: ARMODAFINIL
     Indication: NARCOLEPSY
     Dosage: 250 MILLIGRAM DAILY; IN THE MORNING
     Route: 065
  11. NEXIUM [Concomitant]
     Active Substance: ESOMEPRAZOLE MAGNESIUM
  12. OCUVITE [Concomitant]
     Active Substance: VITAMINS
  13. NUVIGIL [Suspect]
     Active Substance: ARMODAFINIL
     Dosage: 150 MILLIGRAM DAILY; IN THE AFTERNOON
  14. FISH OIL [Concomitant]
     Active Substance: FISH OIL

REACTIONS (7)
  - Malabsorption [Not Recovered/Not Resolved]
  - Activities of daily living impaired [Unknown]
  - Somnolence [Unknown]
  - Lethargy [Not Recovered/Not Resolved]
  - Adverse event [Not Recovered/Not Resolved]
  - Depressed level of consciousness [Not Recovered/Not Resolved]
  - Off label use [Unknown]
